FAERS Safety Report 9260901 (Version 1)
Quarter: 2013Q2

REPORT INFORMATION
  Report Type: Spontaneous
  Country: US (occurrence: US)
  Receive Date: 20130429
  Receipt Date: 20130429
  Transmission Date: 20140414
  Serious: No
  Sender: FDA-Public Use
  Company Number: US-AMGEN-USASP2012018226

PATIENT
  Age: 87 Year
  Sex: Female

DRUGS (8)
  1. SENSIPAR [Suspect]
     Indication: PRODUCT USED FOR UNKNOWN INDICATION
     Dosage: 30 MG, 2 TIMES/WK
  2. ATENOLOL [Concomitant]
     Dosage: 1 MG, QD
  3. CLONIDINE [Concomitant]
     Dosage: 1 MG, QD
  4. BENICAR [Concomitant]
     Dosage: 1 MG, BID
  5. ECOTRIN [Concomitant]
     Dosage: 1 MG, QD
  6. VITAMIN D [Concomitant]
     Dosage: UNK
  7. FUROSEMIDE [Concomitant]
     Dosage: UNK
  8. METANX [Concomitant]
     Dosage: UNK

REACTIONS (2)
  - Nervousness [Unknown]
  - Blood pressure increased [Unknown]
